FAERS Safety Report 12722996 (Version 1)
Quarter: 2016Q3

REPORT INFORMATION
  Report Type: Spontaneous
  Country: CH (occurrence: CH)
  Receive Date: 20160908
  Receipt Date: 20160908
  Transmission Date: 20161109
  Serious: Yes (Hospitalization)
  Sender: FDA-Public Use
  Company Number: CH-ASTRAZENECA-2016SE93590

PATIENT
  Age: 23752 Day
  Sex: Female

DRUGS (4)
  1. ASPIRIN CARDIO [Concomitant]
     Active Substance: ASPIRIN
  2. PANTOZOL [Concomitant]
     Active Substance: PANTOPRAZOLE SODIUM
  3. CRESTOR [Suspect]
     Active Substance: ROSUVASTATIN CALCIUM
     Dosage: DOSE AND FREQUENCY UNKNOWN
     Route: 048
     Dates: start: 201605, end: 20160810
  4. LISINOPRIL + HIDROCLOROTIAZIDA [Concomitant]
     Active Substance: HYDROCHLOROTHIAZIDE\LISINOPRIL

REACTIONS (1)
  - Liver disorder [Recovering/Resolving]

NARRATIVE: CASE EVENT DATE: 20160810
